FAERS Safety Report 4362635-4 (Version None)
Quarter: 2004Q2

REPORT INFORMATION
  Report Type: 
  Country: None (occurrence: None)
  Receive Date: 20040524
  Receipt Date: 19991207
  Transmission Date: 20050107
  Serious: Yes (Life-Threatening, Other)
  Sender: FDA-Public Use
  Company Number: CRAD001/B251/0/7/4/1/USA

PATIENT
  Age: 61 Year
  Sex: Male
  Weight: 74 kg

DRUGS (21)
  1. RAD001 OR MYCOPHENOLATE MOFITIL [Suspect]
     Indication: RENAL TRANSPLANT
     Dosage: CODE NOT BROKEN
     Route: 048
     Dates: start: 19981117
  2. DELTASONE [Suspect]
     Indication: RENAL TRANSPLANT
     Dosage: 10 MG / DAY
     Route: 048
     Dates: start: 19991118
  3. TROGLITAZONE [Concomitant]
  4. LIPITOR [Concomitant]
  5. AMLODIPINE BESYLATE [Concomitant]
  6. HYDRALAZINE HCL [Concomitant]
  7. NEORAL [Suspect]
     Indication: RENAL TRANSPLANT
     Dosage: 125 MG / DAY
     Route: 048
     Dates: start: 20020509
  8. HYDROCHLOROTHIAZIDE [Concomitant]
  9. TENORMIN [Concomitant]
  10. ZOLOFT [Concomitant]
  11. BACTRIM [Concomitant]
  12. ASPIRIN [Concomitant]
  13. MICRONASE [Concomitant]
  14. FUROSEMIDE [Concomitant]
  15. VASOTEC [Concomitant]
  16. PIOGLITAZONE HCL [Concomitant]
  17. CALCIUM CARBONATE [Concomitant]
  18. ETIDRONATE DISODIUM [Concomitant]
  19. SDZ RAD [Suspect]
     Indication: RENAL TRANSPLANT
     Dosage: .5 MG, BID
     Route: 048
     Dates: start: 20031215
  20. SDZ RAD [Suspect]
     Dosage: 1 MG, BID
     Route: 048
     Dates: end: 20021209
  21. SDZ RAD [Suspect]
     Dosage: 1.5 MG, DAILY
     Route: 048
     Dates: start: 20021210

REACTIONS (8)
  - BASAL CELL CARCINOMA [None]
  - BOWEN'S DISEASE [None]
  - CARCINOMA EXCISION [None]
  - CONCOMITANT DISEASE PROGRESSION [None]
  - KERATOACANTHOMA [None]
  - NEOPLASM RECURRENCE [None]
  - SKIN GRAFT [None]
  - SQUAMOUS CELL CARCINOMA [None]
